FAERS Safety Report 8018799-4 (Version None)
Quarter: 2012Q1

REPORT INFORMATION
  Report Type: 
  Country: None (occurrence: None)
  Receive Date: 20120103
  Receipt Date: 20110922
  Transmission Date: 20120608
  Serious: Yes (Hospitalization)
  Sender: FDA-Public Use
  Company Number: NL-ROCHE-GNE321345

PATIENT
  Sex: Male

DRUGS (7)
  1. MONOCEDOCARD [Concomitant]
  2. LISIPROL [Concomitant]
  3. PREDNISONE TAB [Concomitant]
  4. RANIBIZUMAB [Suspect]
     Indication: AGE-RELATED MACULAR DEGENERATION
     Dosage: 0.05 ML, UNK
     Route: 050
     Dates: start: 20081128, end: 20100406
  5. PITAVASTATIN [Concomitant]
  6. FLUTICASONE PROPIONATE/SALMETEROL [Concomitant]
  7. ATROVENT [Concomitant]

REACTIONS (1)
  - LOWER LIMB FRACTURE [None]
